FAERS Safety Report 9502628 (Version 2)
Quarter: 2013Q4

REPORT INFORMATION
  Report Type: Spontaneous
  Country: US (occurrence: US)
  Receive Date: 20130906
  Receipt Date: 20131014
  Transmission Date: 20140711
  Serious: Yes (Other)
  Sender: FDA-Public Use
  Company Number: US-ACCORD-019277

PATIENT
  Age: 21 Year
  Sex: Female

DRUGS (3)
  1. FINASTERIDE [Suspect]
     Indication: MIGRAINE
  2. SPIRONOLACTONE [Concomitant]
     Indication: ALOPECIA
  3. DEXTROAMPHETAMINE SULFATE [Concomitant]
     Indication: MIGRAINE

REACTIONS (2)
  - Dry eye [Unknown]
  - Off label use [Unknown]
